FAERS Safety Report 8240148-7 (Version None)
Quarter: 2012Q1

REPORT INFORMATION
  Report Type: 
  Country: None (occurrence: None)
  Receive Date: 20120328
  Receipt Date: 20120326
  Transmission Date: 20120608
  Serious: Yes (Other)
  Sender: FDA-Public Use
  Company Number: US-PFIZER INC-2012077338

PATIENT
  Sex: Female
  Weight: 58.957 kg

DRUGS (3)
  1. CHANTIX [Suspect]
     Indication: SMOKING CESSATION THERAPY
     Dosage: 0.5 MG, DAILY
     Route: 048
     Dates: start: 20120322, end: 20120324
  2. CHANTIX [Suspect]
     Dosage: UNK
     Route: 048
     Dates: start: 20120301, end: 20120301
  3. CHANTIX [Suspect]
     Dosage: 0.5MG IN MORNING AND 1.5MG IN EVENING
     Route: 048
     Dates: start: 20120325, end: 20120301

REACTIONS (7)
  - EYE SWELLING [None]
  - HYPERSENSITIVITY [None]
  - OEDEMA PERIPHERAL [None]
  - RASH [None]
  - SWELLING FACE [None]
  - PRURITUS [None]
  - LIP SWELLING [None]
